FAERS Safety Report 9867243 (Version 1)
Quarter: 2014Q1

REPORT INFORMATION
  Report Type: Spontaneous
  Country: US (occurrence: None)
  Receive Date: 20140131
  Receipt Date: 20140131
  Transmission Date: 20141002
  Serious: Yes (Death)
  Sender: FDA-Public Use
  Company Number: 2014AP000804

PATIENT
  Age: 69 Year
  Sex: Male

DRUGS (9)
  1. PAROXETINE [Suspect]
  2. AMLODIPINE BESYLATE TABLETS [Suspect]
  3. ATORVASTATIN [Suspect]
  4. FOSINOPRIL SODIUM [Suspect]
  5. LITHIUM CARBONATE CAPSULES [Suspect]
  6. INSULIN [Suspect]
  7. FOSINOPRIL W/HYDROCHLOROTHIAZIDE [Suspect]
  8. DULOXETINE [Suspect]
  9. ESOMEPRAZOLE [Suspect]

REACTIONS (1)
  - Completed suicide [None]
